FAERS Safety Report 8287053-8 (Version None)
Quarter: 2012Q2

REPORT INFORMATION
  Report Type: 
  Country: None (occurrence: None)
  Receive Date: 20120416
  Receipt Date: 20120403
  Transmission Date: 20120825
  Serious: Yes (Hospitalization)
  Sender: FDA-Public Use
  Company Number: FR-SANOFI-AVENTIS-2012SA022985

PATIENT
  Age: 50 Year
  Sex: Female

DRUGS (1)
  1. TAXOTERE [Suspect]
     Route: 065
     Dates: start: 20120103, end: 20120110

REACTIONS (1)
  - COLITIS ULCERATIVE [None]
